FAERS Safety Report 15058017 (Version 1)
Quarter: 2018Q2

REPORT INFORMATION
  Report Type: Report from Study
  Country: None (occurrence: US)
  Receive Date: 20180625
  Receipt Date: 20180625
  Transmission Date: 20180711
  Serious: Yes (Other)
  Sender: FDA-Public Use
  Company Number: US-ABBVIE-18K-163-2392916-00

PATIENT
  Sex: Male

DRUGS (1)
  1. HUMIRA [Suspect]
     Active Substance: ADALIMUMAB
     Indication: RHEUMATOID ARTHRITIS
     Route: 058

REACTIONS (7)
  - Musculoskeletal stiffness [Not Recovered/Not Resolved]
  - Suicidal ideation [Not Recovered/Not Resolved]
  - Sleep disorder due to a general medical condition [Unknown]
  - Drug effect incomplete [Unknown]
  - Substance use [Unknown]
  - Musculoskeletal pain [Not Recovered/Not Resolved]
  - Polydipsia [Not Recovered/Not Resolved]
